FAERS Safety Report 23082842 (Version 1)
Quarter: 2023Q4

REPORT INFORMATION
  Report Type: Spontaneous
  Country: ES (occurrence: ES)
  Receive Date: 20231019
  Receipt Date: 20231019
  Transmission Date: 20240110
  Serious: Yes (Life-Threatening, Hospitalization)
  Sender: FDA-Public Use
  Company Number: None

PATIENT
  Age: 67 Year
  Sex: Male

DRUGS (7)
  1. PACLITAXEL [Interacting]
     Active Substance: PACLITAXEL
     Indication: Squamous cell carcinoma of lung
     Dosage: 335 MG SINGLE DOSE, PACLITAXEL (2698A)
     Dates: start: 20230718, end: 20230718
  2. CARBOPLATIN [Interacting]
     Active Substance: CARBOPLATIN
     Indication: Squamous cell carcinoma of lung
     Dosage: 400 MG SINGLE DOSE, CARBOPLATINO (2323A)
     Dates: start: 20230718, end: 20230718
  3. KEYTRUDA [Interacting]
     Active Substance: PEMBROLIZUMAB
     Indication: Squamous cell carcinoma of lung
     Dosage: 200 MG AS A SINGLE DOSE, 1 VIAL OF 4 ML
     Dates: start: 20230718, end: 20230718
  4. DEXAMETHASONE [Concomitant]
     Active Substance: DEXAMETHASONE
     Indication: Prophylaxis
     Dosage: 20 MG SINGLE DOSE, DEXAMETASONA (722A)
     Dates: start: 20230718, end: 20230718
  5. FAMOTIDINE [Concomitant]
     Active Substance: FAMOTIDINE
     Indication: Prophylaxis
     Dosage: 20MG SINGLE DOSE, FAMOTIDINA (2100A)
     Dates: start: 20230718, end: 20230718
  6. POLARAMINE [Concomitant]
     Active Substance: DEXCHLORPHENIRAMINE MALEATE
     Indication: Prophylaxis
     Dosage: 5 MG SINGLE DOSE, 5 AMPOULES OF 1 ML
     Dates: start: 20230718, end: 20230718
  7. ONDANSETRON [Concomitant]
     Active Substance: ONDANSETRON
     Indication: Prophylaxis
     Dosage: 8 MG SINGLE DOSE, ONDANSETRON (2575A)
     Dates: start: 20230718, end: 20230718

REACTIONS (6)
  - Abdominal pain [Recovered/Resolved]
  - Acute kidney injury [Recovered/Resolved]
  - Tumour lysis syndrome [Recovered/Resolved]
  - Hyperuricaemia [Recovered/Resolved]
  - Diarrhoea [Recovered/Resolved]
  - Drug interaction [Unknown]

NARRATIVE: CASE EVENT DATE: 20230721
